FAERS Safety Report 10802620 (Version 1)
Quarter: 2015Q1

REPORT INFORMATION
  Report Type: Spontaneous
  Country: US (occurrence: US)
  Receive Date: 20150217
  Receipt Date: 20150217
  Transmission Date: 20150721
  Serious: No
  Sender: FDA-Public Use
  Company Number: US-BRACCO-010729

PATIENT
  Age: 55 Year
  Sex: Female

DRUGS (2)
  1. ANALGESICS [Concomitant]
     Active Substance: UNSPECIFIED INGREDIENT
  2. ISOVUE 300 [Suspect]
     Active Substance: IOPAMIDOL
     Indication: THERAPEUTIC PROCEDURE
     Dosage: 2-3 ML
     Route: 037
     Dates: start: 20140314, end: 20140314

REACTIONS (3)
  - Incorrect route of drug administration [Unknown]
  - Wrong drug administered [Unknown]
  - No adverse event [Unknown]

NARRATIVE: CASE EVENT DATE: 20140314
